FAERS Safety Report 8817392 (Version 2)
Quarter: 2012Q4

REPORT INFORMATION
  Report Type: 
  Country: NL (occurrence: NL)
  Receive Date: 20121004
  Receipt Date: 20121114
  Transmission Date: 20130627
  Serious: Yes (Hospitalization)
  Sender: FDA-Public Use
  Company Number: NL-PFIZER INC-2012242738

PATIENT
  Age: 50 Year
  Sex: Male
  Weight: 96 kg

DRUGS (10)
  1. GENOTROPIN [Suspect]
     Indication: PANHYPOPITUITARISM
     Dosage: 0.3 mg, 1x/day 7 injections/week
     Route: 058
     Dates: start: 20021023
  2. LEVOTHYROXINE [Concomitant]
     Indication: TSH DECREASED
     Dosage: 100 ug, 1x/day
     Dates: start: 19950715
  3. MINRIN [Concomitant]
     Indication: ADH DECREASED
     Dosage: 0.1 ug, 3x/day
     Dates: start: 19950715
  4. NORPROLAC ^SANDOZ^ [Concomitant]
     Indication: GALACTOSAEMIA
     Dosage: UNK
     Dates: start: 19951215
  5. RENITEC [Concomitant]
     Indication: ESSENTIAL HYPERTENSION
     Dosage: 20 mg, 1x/day
     Dates: start: 19970203
  6. SUSTANON [Concomitant]
     Indication: LUTEINIZING HORMONE DECREASED
     Dosage: UNK
     Dates: start: 20040921
  7. SUSTANON [Concomitant]
     Indication: FOLLICLE-STIMULATING HORMONE DECREASED
  8. SUSTANON [Concomitant]
     Indication: TESTICULAR HYPOGONADISM
  9. ANDROGEL [Concomitant]
     Dosage: 100 mg, 1x/day
  10. PANTOZOL [Concomitant]
     Dosage: 20 mg, 1x/day

REACTIONS (2)
  - Change of bowel habit [Unknown]
  - Abdominal pain upper [Unknown]
